FAERS Safety Report 18901268 (Version 3)
Quarter: 2021Q3

REPORT INFORMATION
  Report Type: Report from Study
  Country: None (occurrence: JP)
  Receive Date: 20210216
  Receipt Date: 20210715
  Transmission Date: 20211014
  Serious: Yes (Death)
  Sender: FDA-Public Use
  Company Number: JP-ABBVIE-19K-087-3187211-00

PATIENT
  Age: 63 Year
  Sex: Female
  Weight: 45 kg

DRUGS (3)
  1. DUODOPA [Suspect]
     Active Substance: CARBIDOPA\LEVODOPA
     Indication: PARKINSON^S DISEASE
     Dosage: MD: 11 ML?CD: 3 ML/HR X 16 HRS?ED: 1 ML/UNIT X 2
     Route: 050
     Dates: start: 20190716, end: 20210215
  2. DUODOPA [Suspect]
     Active Substance: CARBIDOPA\LEVODOPA
  3. ROTIGOTINE [Concomitant]
     Active Substance: ROTIGOTINE
     Indication: PARKINSON^S DISEASE
     Dates: end: 20210215

REACTIONS (6)
  - Abdominal pain [Unknown]
  - Myocardial infarction [Fatal]
  - Abdominal pain upper [Unknown]
  - Device alarm issue [Unknown]
  - Dyslalia [Unknown]
  - Device occlusion [Unknown]

NARRATIVE: CASE EVENT DATE: 20210215
